FAERS Safety Report 5207835-6 (Version None)
Quarter: 2007Q1

REPORT INFORMATION
  Report Type: 
  Country: None (occurrence: None)
  Receive Date: 20070112
  Receipt Date: 20070102
  Transmission Date: 20070707
  Serious: Yes (Other)
  Sender: FDA-Public Use
  Company Number: GB-PFIZER INC-2007001879

PATIENT
  Sex: Male

DRUGS (2)
  1. HYDROXYZINE PAMOATE [Suspect]
     Indication: ECZEMA
  2. TACROLIMUS [Suspect]
     Indication: ECZEMA
     Route: 061
     Dates: start: 20040101, end: 20060101

REACTIONS (1)
  - SINUSITIS [None]
